FAERS Safety Report 15159171 (Version 4)
Quarter: 2018Q3

REPORT INFORMATION
  Report Type: Spontaneous
  Country: US (occurrence: US)
  Receive Date: 20180718
  Receipt Date: 20180829
  Transmission Date: 20181010
  Serious: No
  Sender: FDA-Public Use
  Company Number: US-SHIRE-US201826775

PATIENT
  Age: 84 Year
  Sex: Male
  Weight: 86.17 kg

DRUGS (1)
  1. XIIDRA [Suspect]
     Active Substance: LIFITEGRAST
     Indication: LACRIMATION INCREASED
     Dosage: 1 GTT EACH EYE, 2X/DAY:BID
     Route: 047
     Dates: start: 20180524, end: 20180525

REACTIONS (11)
  - Vision blurred [Recovered/Resolved]
  - Instillation site irritation [Recovered/Resolved]
  - Instillation site lacrimation [Recovered/Resolved]
  - Drug ineffective [Unknown]
  - Ocular hyperaemia [Recovered/Resolved]
  - Instillation site pain [Recovered/Resolved]
  - Eye irritation [Recovered/Resolved]
  - Instillation site erythema [Recovered/Resolved]
  - Off label use [Unknown]
  - Instillation site reaction [Recovered/Resolved]
  - Instillation site inflammation [Unknown]

NARRATIVE: CASE EVENT DATE: 201805
